FAERS Safety Report 4766318-8 (Version None)
Quarter: 2005Q3

REPORT INFORMATION
  Report Type: 
  Country: None (occurrence: None)
  Receive Date: 20050912
  Receipt Date: 20050902
  Transmission Date: 20060218
  Serious: Yes (Death)
  Sender: FDA-Public Use
  Company Number: GB-NOVOPROD-246684

PATIENT
  Sex: Male

DRUGS (2)
  1. NOVOSEVEN [Suspect]
     Indication: FACTOR XI DEFICIENCY
  2. TRANEXAMIC ACID [Concomitant]
     Dosage: 1 G

REACTIONS (1)
  - CEREBROVASCULAR ACCIDENT [None]
